FAERS Safety Report 8224305-1 (Version None)
Quarter: 2012Q1

REPORT INFORMATION
  Report Type: 
  Country: None (occurrence: None)
  Receive Date: 20120321
  Receipt Date: 20120314
  Transmission Date: 20120608
  Serious: Yes (Other)
  Sender: FDA-Public Use
  Company Number: PHHY2011CA099242

PATIENT
  Sex: Female

DRUGS (6)
  1. PERINDOPRIL ERBUMINE [Concomitant]
     Dosage: 2 MG, QD
  2. VITAMIN D [Concomitant]
     Dosage: 1000 IU, QD
  3. CALCIUM 650/VITAMIN D3 [Concomitant]
     Dosage: 400 IU, BID
  4. ZOLEDRONOC ACID [Suspect]
     Indication: OSTEOPOROSIS
     Dosage: 5 MG / YEAR
     Route: 042
     Dates: start: 20100201
  5. TAMOXIFEN CITRATE [Concomitant]
     Dosage: 20 MG, QD
  6. CRESTOR [Concomitant]
     Dosage: 10 MG, QD

REACTIONS (7)
  - MYALGIA [None]
  - PROTEINURIA [None]
  - FALL [None]
  - MUSCLE SPASMS [None]
  - PAIN IN EXTREMITY [None]
  - NECK PAIN [None]
  - MUSCULOSKELETAL PAIN [None]
